FAERS Safety Report 6376527-2 (Version None)
Quarter: 2009Q3

REPORT INFORMATION
  Report Type: 
  Country: None (occurrence: None)
  Receive Date: 20090925
  Receipt Date: 20090915
  Transmission Date: 20100115
  Serious: Yes (Other)
  Sender: FDA-Public Use
  Company Number: JP-PFIZER INC-2009270788

PATIENT
  Age: 74 Year

DRUGS (1)
  1. MEDROXYPROGESTERONE AND MEDROXYPROGESTERONE ACETATE [Suspect]
     Indication: BREAST CANCER
     Route: 048

REACTIONS (1)
  - DIABETES INSIPIDUS [None]
